FAERS Safety Report 13857881 (Version 1)
Quarter: 2017Q3

REPORT INFORMATION
  Report Type: Spontaneous
  Country: GB (occurrence: GB)
  Receive Date: 20170811
  Receipt Date: 20170811
  Transmission Date: 20171127
  Serious: No
  Sender: FDA-Public Use
  Company Number: GB-ALKEM LABORATORIES LIMITED-GB-ALKEM-001613

PATIENT
  Age: 37 Year
  Sex: Female

DRUGS (3)
  1. AZATHIOPRINE. [Concomitant]
     Active Substance: AZATHIOPRINE
     Indication: DERMATITIS ATOPIC
  2. CICLOSPORIN [Concomitant]
     Active Substance: CYCLOSPORINE
     Indication: DERMATITIS ATOPIC
  3. MYCOPHENOLATE MOFETIL. [Suspect]
     Active Substance: MYCOPHENOLATE MOFETIL
     Indication: DERMATITIS ATOPIC
     Dosage: INITIALLY RECEIVED AT DOSE 500 MG DAILY, THEN INCREASED TO 1 G TWICE A DAY.

REACTIONS (2)
  - Off label use [Unknown]
  - Interstitial lung disease [Recovered/Resolved]

NARRATIVE: CASE EVENT DATE: 201205
